FAERS Safety Report 5695862-4 (Version None)
Quarter: 2008Q2

REPORT INFORMATION
  Report Type: 
  Country: None (occurrence: None)
  Receive Date: 20080407
  Receipt Date: 20080402
  Transmission Date: 20081010
  Serious: Yes (Other)
  Sender: FDA-Public Use
  Company Number: GB-ROCHE-556611

PATIENT
  Age: 51 Year
  Sex: Female

DRUGS (8)
  1. XENICAL [Suspect]
     Indication: WEIGHT CONTROL
     Route: 048
     Dates: start: 20080130
  2. FUROSEMIDE [Concomitant]
     Route: 048
  3. INSULIN GLARGINE [Concomitant]
  4. INSULIN LISPRO [Concomitant]
  5. METFORMIN HCL [Concomitant]
     Route: 048
  6. PARACETAMOL [Concomitant]
     Route: 048
  7. RAMIPRIL [Concomitant]
     Route: 048
  8. SIMVASTATIN [Concomitant]
     Route: 048

REACTIONS (1)
  - DIABETES MELLITUS INADEQUATE CONTROL [None]
